FAERS Safety Report 6821056-2 (Version None)
Quarter: 2010Q3

REPORT INFORMATION
  Report Type: 
  Country: None (occurrence: None)
  Receive Date: 20100707
  Receipt Date: 20071018
  Transmission Date: 20110219
  Serious: No
  Sender: FDA-Public Use
  Company Number: US-PFIZER INC-2007087751

PATIENT
  Sex: Female
  Weight: 90.9 kg

DRUGS (6)
  1. ZOLOFT [Suspect]
     Indication: DEPRESSION
     Dates: start: 20070701
  2. BLACK COHOSH [Concomitant]
  3. CONCERTA [Concomitant]
  4. ZYRTEC [Concomitant]
  5. FLUCONAZOLE [Concomitant]
  6. TRAZODONE HYDROCHLORIDE [Concomitant]

REACTIONS (1)
  - FATIGUE [None]
